FAERS Safety Report 23363180 (Version 3)
Quarter: 2024Q1

REPORT INFORMATION
  Report Type: Report from Study
  Country: CA (occurrence: CA)
  Receive Date: 20240103
  Receipt Date: 20240117
  Transmission Date: 20240410
  Serious: Yes (Hospitalization, Other)
  Sender: FDA-Public Use
  Company Number: CA-HLS-202302955

PATIENT
  Sex: Female

DRUGS (9)
  1. CLOZARIL [Suspect]
     Active Substance: CLOZAPINE
     Indication: Product used for unknown indication
     Dosage: EVERY MORNING (12.5MG) AND AT BEDTIME (25MG).
     Route: 048
     Dates: start: 20231114
  2. Clopixol-depot [Concomitant]
     Indication: Product used for unknown indication
     Dosage: 200 MG EVERY 2 WEEKS
     Route: 065
  3. DIVALPROEX SODIUM [Concomitant]
     Active Substance: DIVALPROEX SODIUM
     Indication: Product used for unknown indication
     Dosage: 1 GM BY MOUTH DAILY
     Route: 065
  4. PROCAINAMIDE HYDROCHLORIDE [Concomitant]
     Active Substance: PROCAINAMIDE HYDROCHLORIDE
     Indication: Product used for unknown indication
     Dosage: INFUSION 1 MILIGRAM/MINUTE
     Route: 065
  5. ESOMEPRAZOLE [Concomitant]
     Active Substance: ESOMEPRAZOLE
     Indication: Product used for unknown indication
     Route: 065
  6. MEROPENEM [Concomitant]
     Active Substance: MEROPENEM
     Indication: Product used for unknown indication
     Dosage: 500 MG INTRAVENOUS EVERY 6 HOUR
     Route: 065
  7. HEPARIN [Concomitant]
     Active Substance: HEPARIN SODIUM
     Indication: Product used for unknown indication
     Route: 065
  8. PROPOFOL [Concomitant]
     Active Substance: PROPOFOL
     Indication: Product used for unknown indication
     Route: 065
  9. EPINEPHRINE [Concomitant]
     Active Substance: EPINEPHRINE
     Dosage: 8 MICROGRAMS/ MINUTES
     Route: 065

REACTIONS (24)
  - Therapy interrupted [Recovered/Resolved]
  - Aggression [Unknown]
  - Atrial fibrillation [Unknown]
  - Blood pressure increased [Unknown]
  - C-reactive protein increased [Unknown]
  - Blood creatinine increased [Unknown]
  - Delirium [Unknown]
  - Cardiac disorder [Unknown]
  - Haemoglobin decreased [Unknown]
  - Respiratory failure [Unknown]
  - Swelling [Unknown]
  - Left ventricular dysfunction [Unknown]
  - Cardiomyopathy [Unknown]
  - Platelet count decreased [Unknown]
  - Pneumonia [Unknown]
  - Pulmonary embolism [Unknown]
  - Electrocardiogram QRS complex shortened [Unknown]
  - Bundle branch block right [Unknown]
  - Sepsis [Unknown]
  - Myocardial infarction [Unknown]
  - Sinus tachycardia [Unknown]
  - Thrombocytopenia [Unknown]
  - Troponin increased [Unknown]
  - White blood cell count increased [Unknown]
